FAERS Safety Report 8960817 (Version 1)
Quarter: 2012Q4

REPORT INFORMATION
  Report Type: Spontaneous
  Country: US (occurrence: None)
  Receive Date: 20121128
  Receipt Date: 20121128
  Transmission Date: 20130627
  Serious: Yes (Life-Threatening)
  Sender: FDA-Public Use
  Company Number: 001410237A

PATIENT
  Age: 65 Year
  Sex: Female

DRUGS (1)
  1. PROACTIV RENEWING CLEANSER [Suspect]
     Indication: ACNE
     Route: 061

REACTIONS (6)
  - Swelling face [None]
  - Lip swelling [None]
  - Eye swelling [None]
  - Swollen tongue [None]
  - Dyspnoea [None]
  - Drug hypersensitivity [None]
